FAERS Safety Report 4531527-X (Version None)
Quarter: 2004Q4

REPORT INFORMATION
  Report Type: 
  Country: None (occurrence: None)
  Receive Date: 20041220
  Receipt Date: 20041208
  Transmission Date: 20050328
  Serious: Yes (Other)
  Sender: FDA-Public Use
  Company Number: US-JNJFOC-20040406435

PATIENT
  Sex: Male
  Weight: 78.47 kg

DRUGS (5)
  1. REMICADE [Suspect]
     Route: 042
     Dates: start: 20040416
  2. REMICADE [Suspect]
     Indication: RHEUMATOID ARTHRITIS
     Route: 042
     Dates: start: 20040416
  3. COUMADIN [Concomitant]
  4. PAIN PILLS [Concomitant]
  5. METHOTREXATE [Concomitant]

REACTIONS (11)
  - ARTHRALGIA [None]
  - ASTHENIA [None]
  - CHEST PAIN [None]
  - DERMATITIS EXFOLIATIVE [None]
  - DYSGEUSIA [None]
  - DYSPNOEA [None]
  - HEADACHE [None]
  - OEDEMA PERIPHERAL [None]
  - PHARYNGOLARYNGEAL PAIN [None]
  - RASH GENERALISED [None]
  - SERUM SICKNESS [None]
